FAERS Safety Report 13226400 (Version 4)
Quarter: 2017Q2

REPORT INFORMATION
  Report Type: Spontaneous
  Country: US (occurrence: US)
  Receive Date: 20170213
  Receipt Date: 20170623
  Transmission Date: 20170830
  Serious: Yes (Hospitalization, Other)
  Sender: FDA-Public Use
  Company Number: US-PFIZER INC-2017063477

PATIENT
  Age: 41 Year
  Sex: Female
  Weight: 77.11 kg

DRUGS (5)
  1. DILANTIN [Suspect]
     Active Substance: PHENYTOIN
     Dosage: 300 MG, DAILY (100 MG ONE IN AM 100 MG TWO IN PM)
     Dates: start: 1975
  2. DILANTIN [Suspect]
     Active Substance: PHENYTOIN
     Indication: SEIZURE
     Dosage: THREE 100MG A DAY
     Dates: start: 1975
  3. OMEPRAZOLE. [Concomitant]
     Active Substance: OMEPRAZOLE
     Indication: HIATUS HERNIA
     Dosage: ONE IN THE MORNING
  4. LOVASTATIN. [Concomitant]
     Active Substance: LOVASTATIN
     Dosage: 100MG, ONE AT NIGHT AT BEDTIME
  5. LYRICA [Suspect]
     Active Substance: PREGABALIN
     Dosage: UNK

REACTIONS (7)
  - Fracture [Unknown]
  - Fall [Unknown]
  - Drug ineffective [Unknown]
  - Abasia [Unknown]
  - Femur fracture [Unknown]
  - Upper limb fracture [Unknown]
  - Road traffic accident [Unknown]

NARRATIVE: CASE EVENT DATE: 1975
